FAERS Safety Report 9051932 (Version 1)
Quarter: 2013Q1

REPORT INFORMATION
  Report Type: Spontaneous
  Country: DE (occurrence: DE)
  Receive Date: 20130207
  Receipt Date: 20130207
  Transmission Date: 20140127
  Serious: Yes (Life-Threatening, Hospitalization, Disabling, Other)
  Sender: FDA-Public Use
  Company Number: DE-JNJFOC-20120711761

PATIENT
  Age: 85 None
  Sex: Female
  Weight: 78 kg

DRUGS (3)
  1. XARELTO [Suspect]
     Indication: ATRIAL FIBRILLATION
     Dates: start: 20120523, end: 20120716
  2. XARELTO [Suspect]
     Indication: CEREBROVASCULAR ACCIDENT PROPHYLAXIS
     Dates: start: 20120523, end: 20120716
  3. ASS [Interacting]
     Indication: ANTICOAGULANT THERAPY
     Route: 048

REACTIONS (5)
  - Subdural haematoma [Unknown]
  - Hemiparesis [Unknown]
  - Fall [Unknown]
  - Somnolence [Unknown]
  - Drug interaction [Unknown]
